FAERS Safety Report 5797818-X (Version None)
Quarter: 2008Q2

REPORT INFORMATION
  Report Type: 
  Country: None (occurrence: None)
  Receive Date: 20080630
  Receipt Date: 20080616
  Transmission Date: 20081010
  Serious: Yes (Hospitalization, Disabling)
  Sender: FDA-Public Use
  Company Number: 001634

PATIENT
  Age: 66 Year
  Sex: Male

DRUGS (2)
  1. PLETAL [Suspect]
     Indication: INTERMITTENT CLAUDICATION
     Dosage: 100 MG, BID
     Route: 048
     Dates: start: 20070417, end: 20071101
  2. SIMVASTATIN [Concomitant]

REACTIONS (6)
  - APHASIA [None]
  - DISTURBANCE IN ATTENTION [None]
  - DYSPHAGIA [None]
  - FACIAL PARESIS [None]
  - HEMIPLEGIA [None]
  - ISCHAEMIC STROKE [None]
